FAERS Safety Report 8196438-X (Version None)
Quarter: 2012Q1

REPORT INFORMATION
  Report Type: 
  Country: None (occurrence: None)
  Receive Date: 20120309
  Receipt Date: 20120304
  Transmission Date: 20120608
  Serious: Yes (Disabling, Other)
  Sender: FDA-Public Use
  Company Number: US-PFIZER INC-2012057514

PATIENT
  Sex: Female
  Weight: 75.737 kg

DRUGS (6)
  1. LORATADINE [Suspect]
     Indication: HEADACHE
  2. LORATADINE [Suspect]
     Indication: HYPERSENSITIVITY
     Dosage: 10 MG, DAILY
     Route: 048
  3. IBUPROFEN [Concomitant]
     Indication: PAIN
  4. CHANTIX [Suspect]
     Dosage: UNK
     Route: 048
     Dates: start: 20120304
  5. TYLENOL [Concomitant]
     Indication: ARTHRITIS
     Dosage: 500 MG, AS NEEDED
  6. CHANTIX [Suspect]
     Indication: SMOKING CESSATION THERAPY
     Dosage: 0.5 MG, UNK
     Route: 048
     Dates: start: 20120227, end: 20120228

REACTIONS (14)
  - ANGER [None]
  - FOREIGN BODY [None]
  - PYREXIA [None]
  - ACTIVITIES OF DAILY LIVING IMPAIRED [None]
  - GASTRIC DISORDER [None]
  - DIARRHOEA [None]
  - MALAISE [None]
  - COUGH [None]
  - HEADACHE [None]
  - SNEEZING [None]
  - VOMITING [None]
  - DIZZINESS [None]
  - NASOPHARYNGITIS [None]
  - FEELING ABNORMAL [None]
